FAERS Safety Report 15780670 (Version 1)
Quarter: 2019Q1

REPORT INFORMATION
  Report Type: Report from Study
  Country: US (occurrence: US)
  Receive Date: 20190102
  Receipt Date: 20190102
  Transmission Date: 20190417
  Serious: No
  Sender: FDA-Public Use
  Company Number: PHHY2017US152128

PATIENT
  Sex: Female
  Weight: 96.2 kg

DRUGS (1)
  1. GILENYA [Suspect]
     Active Substance: FINGOLIMOD HYDROCHLORIDE
     Indication: MULTIPLE SCLEROSIS
     Dosage: 0.5 MG, QD
     Route: 048
     Dates: start: 20150627, end: 20161107

REACTIONS (3)
  - Normal newborn [Unknown]
  - Maternal exposure before pregnancy [Unknown]
  - Delivery [Unknown]
